FAERS Safety Report 5202444-7 (Version None)
Quarter: 2006Q4

REPORT INFORMATION
  Report Type: 
  Country: None (occurrence: None)
  Receive Date: 20061010
  Receipt Date: 20050824
  Transmission Date: 20070319
  Serious: Yes (Death)
  Sender: FDA-Public Use
  Company Number: 2005P1000574

PATIENT
  Age: 79 Year
  Sex: Male

DRUGS (4)
  1. RETEVASE [Suspect]
     Indication: ACUTE MYOCARDIAL INFARCTION
     Dosage: IV
     Route: 042
     Dates: start: 20050721, end: 20050721
  2. ABCIXIMAB (ABCIXIMAB) [Suspect]
     Indication: DRUG USE FOR UNKNOWN INDICATION
     Dosage: IV
     Route: 042
     Dates: start: 20050721
  3. PANTOPRAZOLE SODIUM [Concomitant]
  4. CARBASALATE CALCIUM [Concomitant]

REACTIONS (2)
  - CARDIOGENIC SHOCK [None]
  - VENTRICULAR ARRHYTHMIA [None]
